FAERS Safety Report 21577929 (Version 6)
Quarter: 2022Q4

REPORT INFORMATION
  Report Type: Report from Study
  Country: BR (occurrence: BR)
  Receive Date: 20221110
  Receipt Date: 20221220
  Transmission Date: 20230112
  Serious: Yes (Death, Life-Threatening, Hospitalization)
  Sender: FDA-Public Use
  Company Number: BR-JNJFOC-20221102416

PATIENT
  Age: 83 Year
  Sex: Male
  Weight: 50.1 kg

DRUGS (24)
  1. TECLISTAMAB [Suspect]
     Active Substance: TECLISTAMAB
     Indication: Plasma cell myeloma refractory
     Route: 058
     Dates: start: 20221011, end: 20221014
  2. TECLISTAMAB [Suspect]
     Active Substance: TECLISTAMAB
     Route: 058
     Dates: start: 20221017, end: 20221017
  3. DARATUMUMAB [Suspect]
     Active Substance: DARATUMUMAB
     Indication: Plasma cell myeloma refractory
     Route: 058
     Dates: start: 20221010, end: 20221017
  4. INSULIN HUMAN [Concomitant]
     Active Substance: INSULIN HUMAN
     Indication: Diabetes mellitus
     Dosage: 4
     Route: 058
     Dates: start: 20220401
  5. ALLOPURINOL [Concomitant]
     Active Substance: ALLOPURINOL
     Indication: Hyperuricaemia
     Route: 048
     Dates: start: 20221013
  6. ROMIPLOSTIM [Concomitant]
     Active Substance: ROMIPLOSTIM
     Indication: Platelet count decreased
     Route: 058
     Dates: start: 20221024, end: 20221024
  7. GABAPENTIN [Concomitant]
     Active Substance: GABAPENTIN
     Indication: Pain
     Route: 048
     Dates: start: 20221111
  8. SIMVASTATIN [Concomitant]
     Active Substance: SIMVASTATIN
     Indication: Hypertension
     Route: 048
  9. CARVEDILOL [Concomitant]
     Active Substance: CARVEDILOL
     Indication: Hypertension
     Route: 048
  10. PROPATYL NITRATE [Concomitant]
     Active Substance: PROPATYL NITRATE
     Indication: Hypertension
     Route: 048
  11. LOSARTAN [Concomitant]
     Active Substance: LOSARTAN
     Indication: Hypertension
     Route: 048
  12. SULFAMETHOXAZOLE\TRIMETHOPRIM [Concomitant]
     Active Substance: SULFAMETHOXAZOLE\TRIMETHOPRIM
     Indication: Infection prophylaxis
     Route: 048
  13. ACYCLOVIR [Concomitant]
     Active Substance: ACYCLOVIR
     Indication: Infection prophylaxis
     Route: 048
  14. OMEPRAZOLE [Concomitant]
     Active Substance: OMEPRAZOLE
     Indication: Prophylaxis
     Route: 048
  15. ROMIPLOSTIM [Concomitant]
     Active Substance: ROMIPLOSTIM
     Indication: Platelet count decreased
     Route: 058
     Dates: start: 20221024, end: 20221024
  16. MICAFUNGIN [Concomitant]
     Active Substance: MICAFUNGIN
     Indication: Infection prophylaxis
     Route: 042
     Dates: start: 20221028, end: 20221111
  17. NYSTATIN [Concomitant]
     Active Substance: NYSTATIN
     Indication: Candida infection
     Route: 048
     Dates: start: 20221028
  18. PIPERACILLIN AND TAZOBACTAM [Concomitant]
     Active Substance: PIPERACILLIN SODIUM\TAZOBACTAM SODIUM
     Indication: Infection prophylaxis
     Route: 042
     Dates: start: 20221028, end: 20221030
  19. MEROPENEM [Concomitant]
     Active Substance: MEROPENEM
     Indication: Urinary tract infection
     Route: 042
     Dates: start: 20221030, end: 20221111
  20. BORON [Concomitant]
     Active Substance: BORON
     Indication: Hypotension
     Route: 042
     Dates: start: 20221013, end: 20221013
  21. ANIDULAFUNGIN [Concomitant]
     Active Substance: ANIDULAFUNGIN
     Indication: Prophylaxis
     Dates: start: 20221112
  22. DIPYRONE [Concomitant]
     Active Substance: DIPYRONE
     Indication: Pain
     Dates: start: 20221028, end: 20221127
  23. DIPYRONE [Concomitant]
     Active Substance: DIPYRONE
     Indication: Pyrexia
  24. ONDANSETRON [Concomitant]
     Active Substance: ONDANSETRON
     Indication: Prophylaxis of nausea and vomiting
     Dates: start: 20221028, end: 20221127

REACTIONS (3)
  - Sepsis [Fatal]
  - Respiratory failure [Unknown]
  - Febrile neutropenia [Unknown]

NARRATIVE: CASE EVENT DATE: 20221027
